FAERS Safety Report 15211021 (Version 1)
Quarter: 2018Q4

REPORT INFORMATION
  Report Type: Spontaneous
  Country: US (occurrence: US)
  Receive Date: 20180728
  Receipt Date: 20180728
  Transmission Date: 20190204
  Serious: Yes (Life-Threatening, Hospitalization)
  Sender: FDA-Public Use
  Company Number: US-JUBILANT PHARMA LTD-2018US000774

PATIENT
  Age: 55 Year
  Sex: Female

DRUGS (3)
  1. CALCIUM CHANNEL BLOCKERS [Concomitant]
     Active Substance: UNSPECIFIED INGREDIENT
     Indication: HYPERTENSION
  2. ?-ADRENERGIC RECEPTOR ANTAGONIST [Concomitant]
     Indication: HYPERTENSION
  3. SODIUM IODIDE I-131. [Suspect]
     Active Substance: SODIUM IODIDE I-131
     Indication: BASEDOW^S DISEASE
     Dosage: 11.9 MCI, SINGLE DOSE

REACTIONS (10)
  - Bradycardia [Recovered/Resolved]
  - Vomiting [Recovered/Resolved]
  - Tremor [Recovered/Resolved]
  - Hypotension [Recovered/Resolved]
  - Nodal rhythm [Recovered/Resolved]
  - Thyrotoxic crisis [Recovered/Resolved]
  - Abdominal pain [Recovered/Resolved]
  - Tachycardia [Recovered/Resolved]
  - Atrioventricular block complete [Recovered/Resolved]
  - Pyrexia [Recovered/Resolved]
